FAERS Safety Report 4720499-0 (Version None)
Quarter: 2005Q3

REPORT INFORMATION
  Report Type: 
  Country: None (occurrence: None)
  Receive Date: 20050719
  Receipt Date: 20050325
  Transmission Date: 20060218
  Serious: Yes (Hospitalization)
  Sender: FDA-Public Use
  Company Number: 2005050290

PATIENT
  Sex: Female

DRUGS (8)
  1. CELEBREX [Suspect]
     Indication: ARTHRITIS
     Dosage: UNKNOWN (200 MG, UNKNOWN), UNKNOWN
     Route: 065
     Dates: end: 20050101
  2. FAMOTIDINE [Concomitant]
  3. HYDROCHLOROTHIAZIDE [Concomitant]
  4. FLUOXETINE [Concomitant]
  5. POTASSIUM CHLORIDE [Concomitant]
  6. VICODIN [Concomitant]
  7. GABAPENTIN [Concomitant]
  8. TELMISARTAN (TELMISARTAN) [Concomitant]

REACTIONS (1)
  - GASTROINTESTINAL HAEMORRHAGE [None]
